FAERS Safety Report 5022443-8 (Version None)
Quarter: 2006Q2

REPORT INFORMATION
  Report Type: 
  Country: None (occurrence: None)
  Receive Date: 20060609
  Receipt Date: 20060214
  Transmission Date: 20061013
  Serious: Yes (Death, Hospitalization)
  Sender: FDA-Public Use
  Company Number: DE-ROCHE-436530

PATIENT
  Age: 37 Year
  Sex: Female

DRUGS (3)
  1. INTERFERON ALFA-2A [Suspect]
     Indication: METASTATIC MALIGNANT MELANOMA
     Dosage: ON DAYS 11 AND 18 IN A CYCLE (EVERY 28 DAYS).
     Route: 058
     Dates: end: 20051024
  2. DACARBAZINE [Suspect]
     Indication: METASTATIC MALIGNANT MELANOMA
     Dosage: ON DAY ONE OF EACH CYCLE (EVERY 28 DAYS).
     Route: 042
     Dates: end: 20051024
  3. THYMOSIN ALPHA 1 [Suspect]
     Indication: METASTATIC MALIGNANT MELANOMA
     Dosage: ON DAYS 8-11 AND DAYS 15-18 IN EACH CYCLE (EVERY 28 DAYS).
     Route: 058
     Dates: end: 20051024

REACTIONS (2)
  - DISEASE PROGRESSION [None]
  - WHOLE BLOOD TRANSFUSION [None]
